FAERS Safety Report 8306944-2 (Version None)
Quarter: 2012Q2

REPORT INFORMATION
  Report Type: 
  Country: None (occurrence: None)
  Receive Date: 20120419
  Receipt Date: 20120412
  Transmission Date: 20120825
  Serious: Yes (Other)
  Sender: FDA-Public Use
  Company Number: ADR-2008-5966

PATIENT
  Sex: Female

DRUGS (3)
  1. BUPIVICAINE [Concomitant]
  2. MORPHINE SULFATE [Concomitant]
  3. LIORESAL [Suspect]
     Indication: PAIN
     Dosage: MCG, DAILY, INTRATH
     Route: 037

REACTIONS (21)
  - ARTHRITIS INFECTIVE [None]
  - PAIN [None]
  - PAIN IN EXTREMITY [None]
  - DEVICE LEAKAGE [None]
  - DEVICE DISLOCATION [None]
  - INFECTION [None]
  - ILEUS PARALYTIC [None]
  - DEVICE MALFUNCTION [None]
  - COMA [None]
  - TONGUE DISCOLOURATION [None]
  - INFECTED SKIN ULCER [None]
  - THROMBOSIS [None]
  - NEUROMA [None]
  - GLOSSODYNIA [None]
  - VISION BLURRED [None]
  - MEDICAL DEVICE COMPLICATION [None]
  - PRODUCT QUALITY ISSUE [None]
  - HEADACHE [None]
  - MEDICAL DEVICE PAIN [None]
  - SYNCOPE [None]
  - BURNING SENSATION [None]
